FAERS Safety Report 18405549 (Version 1)
Quarter: 2020Q4

REPORT INFORMATION
  Report Type: Other
  Country: CA (occurrence: CA)
  Receive Date: 20201020
  Receipt Date: 20201020
  Transmission Date: 20210114
  Serious: Yes (Other)
  Sender: FDA-Public Use
  Company Number: CA-BECTON DICKINSON-2020BDN00248

PATIENT
  Age: 42 Year
  Sex: Female
  Weight: 81 kg

DRUGS (14)
  1. LEFLUNOMIDE. [Suspect]
     Active Substance: LEFLUNOMIDE
  2. ORENCIA [Suspect]
     Active Substance: ABATACEPT
  3. CHLORHEXIDINE GLUCONATE. [Suspect]
     Active Substance: CHLORHEXIDINE GLUCONATE
  4. ACTEMRA [Suspect]
     Active Substance: TOCILIZUMAB
  5. OXYCODONE [Suspect]
     Active Substance: OXYCODONE
  6. ACETAMINOPHEN. [Suspect]
     Active Substance: ACETAMINOPHEN
  7. SIMPONI [Suspect]
     Active Substance: GOLIMUMAB
     Route: 058
  8. CHLORHEXIDINE [Suspect]
     Active Substance: CHLORHEXIDINE
  9. ACETAMINOPHEN/OXYCODONE HYDROCHLORIDE [Suspect]
     Active Substance: ACETAMINOPHEN\OXYCODONE HYDROCHLORIDE
  10. METHOTREXATE. [Suspect]
     Active Substance: METHOTREXATE
  11. ARAVA [Suspect]
     Active Substance: LEFLUNOMIDE
  12. ENBREL [Suspect]
     Active Substance: ETANERCEPT
     Indication: RHEUMATOID ARTHRITIS
     Route: 058
  13. OXYCODONE TEREPHTHALATE [Suspect]
     Active Substance: OXYCODONE TEREPHTHALATE
  14. CIMZIA [Suspect]
     Active Substance: CERTOLIZUMAB PEGOL
     Indication: RHEUMATOID ARTHRITIS
     Dosage: 400 MG, CYCLICAL
     Route: 058

REACTIONS (20)
  - Back pain [Unknown]
  - Ear pain [Unknown]
  - Lower respiratory tract infection [Unknown]
  - Night sweats [Unknown]
  - Peripheral swelling [Unknown]
  - Sinusitis [Unknown]
  - Diarrhoea [Unknown]
  - Insomnia [Unknown]
  - Joint swelling [Unknown]
  - Pain [Unknown]
  - Rash [Unknown]
  - Body temperature increased [Unknown]
  - Pruritus [Unknown]
  - Vomiting [Unknown]
  - Abdominal pain upper [Unknown]
  - Asthenia [Unknown]
  - Muscle spasticity [Unknown]
  - Respiratory disorder [Unknown]
  - Headache [Unknown]
  - Urticaria [Unknown]
